FAERS Safety Report 14448491 (Version 2)
Quarter: 2018Q1

REPORT INFORMATION
  Report Type: Spontaneous
  Country: MX (occurrence: MX)
  Receive Date: 20180126
  Receipt Date: 20180220
  Transmission Date: 20180509
  Serious: Yes (Death, Hospitalization, Other)
  Sender: FDA-Public Use
  Company Number: MX-BAYER-2018-011018

PATIENT
  Age: 84 Year
  Sex: Male

DRUGS (13)
  1. CANDESARTAN CILEXETIL. [Concomitant]
     Active Substance: CANDESARTAN CILEXETIL
  2. TROXERUTIN [Concomitant]
     Active Substance: TROXERUTIN
  3. AMLODIPINE BESYLATE. [Concomitant]
     Active Substance: AMLODIPINE BESYLATE
  4. METOCLOPRAMIDE. [Concomitant]
     Active Substance: METOCLOPRAMIDE
     Dosage: 10 MG, Q8HR
  5. CALTRATE WITH VITAMIN D [Concomitant]
     Active Substance: CALCIUM CARBONATE\CHOLECALCIFEROL
     Dosage: 600 MG, BID
  6. COUMARIN [Concomitant]
     Active Substance: COUMARIN
  7. XOFIGO [Suspect]
     Active Substance: RADIUM RA-223 DICHLORIDE
     Indication: METASTASES TO BONE
  8. XOFIGO [Suspect]
     Active Substance: RADIUM RA-223 DICHLORIDE
     Indication: PROSTATE CANCER STAGE IV
     Dosage: UNK
     Dates: start: 20171028, end: 20171028
  9. VINORELBINE [Concomitant]
     Active Substance: VINORELBINE\VINORELBINE TARTRATE
  10. MELOXICAM. [Concomitant]
     Active Substance: MELOXICAM
  11. DIPHENIDOL HCL AMEL [Concomitant]
  12. ZYTIGA [Concomitant]
     Active Substance: ABIRATERONE ACETATE
  13. MONTELUKAST SODIUM. [Concomitant]
     Active Substance: MONTELUKAST SODIUM

REACTIONS (17)
  - Metastases to soft tissue [None]
  - Prostate cancer metastatic [Fatal]
  - Pain [Unknown]
  - Feeling abnormal [None]
  - General physical health deterioration [Unknown]
  - Metastases to lung [None]
  - Malaise [None]
  - Laceration [None]
  - Pain [None]
  - Nausea [None]
  - Restlessness [None]
  - Parosmia [None]
  - Confusional state [None]
  - Loss of consciousness [None]
  - Emotional distress [Unknown]
  - Discomfort [Unknown]
  - Insomnia [None]

NARRATIVE: CASE EVENT DATE: 20171028
